FAERS Safety Report 11866683 (Version 1)
Quarter: 2015Q4

REPORT INFORMATION
  Report Type: Spontaneous
  Country: GB (occurrence: GB)
  Receive Date: 20151224
  Receipt Date: 20151224
  Transmission Date: 20160305
  Serious: Yes (Life-Threatening, Disabling)
  Sender: FDA-Public Use
  Company Number: GB-ACCORD-036351

PATIENT
  Age: 18 Year
  Sex: Female
  Weight: 71 kg

DRUGS (9)
  1. LEVETIRACETAM. [Suspect]
     Active Substance: LEVETIRACETAM
     Indication: PRODUCT USED FOR UNKNOWN INDICATION
     Dates: start: 20151104
  2. LEVOTHYROXINE. [Concomitant]
     Active Substance: LEVOTHYROXINE
     Dosage: IN THE MORNING
     Dates: start: 20150219
  3. OLOPATADINE/OLOPATADINE HYDROCHLORIDE [Concomitant]
     Dosage: BOTH EYES
     Route: 050
     Dates: start: 20150219, end: 20150926
  4. OMEPRAZOLE. [Concomitant]
     Active Substance: OMEPRAZOLE
     Dosage: ONE DAILY, IF REQUIRED.
     Dates: start: 20150219, end: 20150926
  5. PRO D3 [Concomitant]
     Dosage: 6000 UNITS (3ML) DAILY
     Dates: start: 20150527
  6. AMLODIPINE [Concomitant]
     Active Substance: AMLODIPINE BESYLATE
     Dates: start: 20150219
  7. CODEINE [Concomitant]
     Active Substance: CODEINE
     Dosage: TWICE A DAY, AS NECESSARY.
     Dates: start: 20150219
  8. VITA-POS [Concomitant]
     Dosage: APPLY TO BOTH EYES
     Dates: start: 20150219, end: 20150926
  9. RAMIPRIL. [Concomitant]
     Active Substance: RAMIPRIL
     Dates: start: 20150219

REACTIONS (2)
  - Suicidal ideation [Not Recovered/Not Resolved]
  - Thinking abnormal [Not Recovered/Not Resolved]

NARRATIVE: CASE EVENT DATE: 20151203
